FAERS Safety Report 4370398-1 (Version None)
Quarter: 2004Q2

REPORT INFORMATION
  Report Type: 
  Country: None (occurrence: None)
  Receive Date: 20040603
  Receipt Date: 20040227
  Transmission Date: 20050107
  Serious: Yes (Other)
  Sender: FDA-Public Use
  Company Number: US-BRISTOL-MYERS SQUIBB COMPANY-12520839

PATIENT
  Age: 17 Year
  Sex: Female
  Weight: 68 kg

DRUGS (5)
  1. ABILIFY [Suspect]
     Indication: MAJOR DEPRESSION
     Dosage: 10 MG 18-FEB-04;INCREASED TO 20MG (DATE NOT REPORTED); DOSE DECREASED 27-FEB-04
     Route: 048
     Dates: start: 20040218, end: 20040301
  2. ABILIFY [Suspect]
     Indication: PSYCHOTIC DISORDER
     Dosage: 10 MG 18-FEB-04;INCREASED TO 20MG (DATE NOT REPORTED); DOSE DECREASED 27-FEB-04
     Route: 048
     Dates: start: 20040218, end: 20040301
  3. EFFEXOR [Concomitant]
     Dates: end: 20040218
  4. SEROQUEL [Concomitant]
     Dates: start: 20040212
  5. LEXAPRO [Concomitant]

REACTIONS (2)
  - BLOOD PRESSURE INCREASED [None]
  - HEART RATE INCREASED [None]
